FAERS Safety Report 6543491-2 (Version None)
Quarter: 2010Q1

REPORT INFORMATION
  Report Type: 
  Country: None (occurrence: None)
  Receive Date: 20100120
  Receipt Date: 20100113
  Transmission Date: 20100710
  Serious: Yes (Death, Hospitalization)
  Sender: FDA-Public Use
  Company Number: B0584462A

PATIENT
  Sex: Female
  Weight: 61 kg

DRUGS (4)
  1. TYKERB [Suspect]
     Indication: BREAST CANCER
     Route: 048
     Dates: start: 20090701, end: 20090911
  2. XELODA [Concomitant]
     Indication: METASTASES TO LIVER
     Dosage: 3600MG PER DAY
     Route: 048
     Dates: start: 20090701, end: 20090911
  3. PYDOXAL [Concomitant]
     Indication: PROPHYLAXIS
     Dosage: 60MG PER DAY
     Route: 048
     Dates: start: 20090701, end: 20090911
  4. LOXONIN [Concomitant]
     Route: 048
     Dates: start: 20090702, end: 20090911

REACTIONS (5)
  - BREAST CANCER [None]
  - DIARRHOEA [None]
  - PYREXIA [None]
  - RASH [None]
  - VOMITING [None]
